FAERS Safety Report 8988668 (Version 1)
Quarter: 2012Q4

REPORT INFORMATION
  Report Type: 
  Country: FR (occurrence: FR)
  Receive Date: 20121227
  Receipt Date: 20121227
  Transmission Date: 20130627
  Serious: Yes (Hospitalization, Other)
  Sender: FDA-Public Use
  Company Number: FR-B.I. PHARMACEUTICALS,INC./RIDGEFIELD-2012-FF-02034FF

PATIENT
  Age: 76 Year
  Sex: Male

DRUGS (7)
  1. PRADAXA [Suspect]
     Indication: CARDIAC FLUTTER
     Dosage: 220 mg
     Route: 048
     Dates: start: 201208, end: 20121206
  2. CORDARONE [Concomitant]
     Indication: ARRHYTHMIA
     Dosage: 200 mg
     Route: 048
     Dates: start: 20120913
  3. DECAPEPTYL [Concomitant]
     Indication: PROSTATE CANCER
  4. LANTUS [Concomitant]
     Indication: DIABETES MELLITUS
  5. HALDOL [Concomitant]
     Indication: PSYCHOTIC DISORDER
  6. XATRAL [Concomitant]
  7. MOPRAL [Concomitant]

REACTIONS (5)
  - Renal failure acute [Recovered/Resolved]
  - Oedema peripheral [Recovered/Resolved]
  - Gastrointestinal haemorrhage [Recovered/Resolved]
  - Epistaxis [Recovered/Resolved]
  - Ear haemorrhage [Recovered/Resolved]
